FAERS Safety Report 14928813 (Version 1)
Quarter: 2018Q2

REPORT INFORMATION
  Report Type: Spontaneous
  Country: US (occurrence: US)
  Receive Date: 20180504
  Receipt Date: 20180504
  Transmission Date: 20180711
  Serious: Yes (Hospitalization)
  Sender: FDA-Public Use
  Company Number: None

PATIENT
  Age: 74 Year
  Sex: Female

DRUGS (2)
  1. OXYCODONE [Concomitant]
     Active Substance: OXYCODONE
  2. ALECENSA [Suspect]
     Active Substance: ALECTINIB HYDROCHLORIDE
     Indication: METASTATIC NEOPLASM
     Route: 048
     Dates: start: 20180413

REACTIONS (2)
  - Spinal operation [None]
  - Procedural complication [None]

NARRATIVE: CASE EVENT DATE: 201804
